FAERS Safety Report 4445741-5 (Version None)
Quarter: 2004Q3

REPORT INFORMATION
  Report Type: 
  Country: None (occurrence: None)
  Receive Date: 20040910
  Receipt Date: 20040901
  Transmission Date: 20050211
  Serious: Yes (Hospitalization)
  Sender: FDA-Public Use
  Company Number: US-JNJFOC-20040204064

PATIENT
  Sex: Male
  Weight: 78.93 kg

DRUGS (7)
  1. DURAGESIC [Suspect]
     Route: 062
  2. DURAGESIC [Suspect]
     Route: 062
  3. SUMATRIPTAN SUCCINATE [Concomitant]
  4. PROPRANOLOL HYDROCHLORIDE [Concomitant]
  5. TOPIRMATE [Concomitant]
  6. ACETYLSALICYLIC ACID [Concomitant]
  7. QUINAPRIL HYDROCHLORIDE [Concomitant]

REACTIONS (21)
  - ANOREXIA [None]
  - BODY TEMPERATURE INCREASED [None]
  - CHILLS [None]
  - COLD SWEAT [None]
  - DISEASE RECURRENCE [None]
  - DIZZINESS [None]
  - DRUG EFFECT DECREASED [None]
  - DRUG WITHDRAWAL SYNDROME [None]
  - GASTROINTESTINAL DISORDER [None]
  - HEADACHE [None]
  - LACRIMATION INCREASED [None]
  - MALLORY-WEISS SYNDROME [None]
  - MIGRAINE [None]
  - NAUSEA [None]
  - OFF LABEL USE [None]
  - PHARMACEUTICAL PRODUCT COMPLAINT [None]
  - PROTHROMBIN TIME PROLONGED [None]
  - RETCHING [None]
  - STOMACH DISCOMFORT [None]
  - THROMBOSIS [None]
  - VOMITING [None]
